FAERS Safety Report 7602202-X (Version None)
Quarter: 2011Q3

REPORT INFORMATION
  Report Type: 
  Country: None (occurrence: None)
  Receive Date: 20110711
  Receipt Date: 20110630
  Transmission Date: 20111222
  Serious: Yes (Hospitalization, Other)
  Sender: FDA-Public Use
  Company Number: US-ASTRAZENECA-2008UW27309

PATIENT
  Age: 69 Year
  Sex: Female

DRUGS (1)
  1. NEXIUM [Suspect]
     Route: 048

REACTIONS (5)
  - MEDICAL DEVICE COMPLICATION [None]
  - HOSPITALISATION [None]
  - PAIN [None]
  - DRUG DOSE OMISSION [None]
  - NEOPLASM MALIGNANT [None]
